FAERS Safety Report 8592080-7 (Version None)
Quarter: 2012Q3

REPORT INFORMATION
  Report Type: 
  Country: None (occurrence: None)
  Receive Date: 20120814
  Receipt Date: 20120810
  Transmission Date: 20120928
  Serious: Yes (Other)
  Sender: FDA-Public Use
  Company Number: FR-AMGEN-FRASP2012050236

PATIENT
  Age: 56 Year
  Sex: Male

DRUGS (3)
  1. VECTIBIX [Suspect]
     Indication: COLORECTAL CANCER METASTATIC
     Dosage: 500 MG, UNK
     Dates: start: 20120628
  2. VECTIBIX [Suspect]
     Dosage: UNK
  3. FOLFIRI [Concomitant]
     Indication: COLORECTAL CANCER METASTATIC

REACTIONS (1)
  - PROTEINURIA [None]
